FAERS Safety Report 10175405 (Version 1)
Quarter: 2014Q2

REPORT INFORMATION
  Report Type: Spontaneous
  Country: JP (occurrence: JP)
  Receive Date: 20140515
  Receipt Date: 20140515
  Transmission Date: 20141212
  Serious: Yes (Other)
  Sender: FDA-Public Use
  Company Number: JP-BAXTER-2014BAX023703

PATIENT
  Age: 45 Year
  Sex: Male
  Weight: 69 kg

DRUGS (3)
  1. GAMMAGARD FOR INJECTION 2.5G [Suspect]
     Indication: ENCEPHALITIS
     Route: 042
  2. GAMMAGARD FOR INJECTION 2.5G [Suspect]
     Indication: OFF LABEL USE
     Route: 042
  3. METHYLPREDNISOLONE [Concomitant]
     Indication: ENCEPHALITIS
     Route: 065

REACTIONS (1)
  - Hepatic function abnormal [Recovered/Resolved]
